FAERS Safety Report 5938932-5 (Version None)
Quarter: 2008Q4

REPORT INFORMATION
  Report Type: 
  Country: None (occurrence: None)
  Receive Date: 20081103
  Receipt Date: 20081027
  Transmission Date: 20090506
  Serious: Yes (Other)
  Sender: FDA-Public Use
  Company Number: US-BAYER-200836979NA

PATIENT
  Age: 92 Year
  Sex: Male
  Weight: 53 kg

DRUGS (2)
  1. NEXAVAR [Suspect]
     Indication: HEPATIC NEOPLASM MALIGNANT
     Route: 048
     Dates: start: 20080901, end: 20081001
  2. NEXAVAR [Suspect]
     Route: 048
     Dates: start: 20081023

REACTIONS (3)
  - AGEUSIA [None]
  - ANOREXIA [None]
  - WEIGHT DECREASED [None]
